FAERS Safety Report 12375663 (Version 1)
Quarter: 2016Q2

REPORT INFORMATION
  Report Type: Spontaneous
  Country: US (occurrence: None)
  Receive Date: 20160516
  Receipt Date: 20160516
  Transmission Date: 20160815
  Serious: Yes (Disabling, Other)
  Sender: FDA-Public Use
  Company Number: None

PATIENT
  Age: 81 Year
  Sex: Female
  Weight: 53.52 kg

DRUGS (45)
  1. EVISTA [Concomitant]
     Active Substance: RALOXIFENE HYDROCHLORIDE
  2. LEVOTHYROXINE. [Concomitant]
     Active Substance: LEVOTHYROXINE
  3. L-LYSINE [Concomitant]
     Active Substance: LYSINE
  4. GINGER ROOT [Concomitant]
     Active Substance: GINGER
  5. COENZYME Q10 [Concomitant]
     Active Substance: UBIDECARENONE
  6. PROBIOTIC [Concomitant]
     Active Substance: PROBIOTICS NOS
  7. LANSOPRAZOLE. [Concomitant]
     Active Substance: LANSOPRAZOLE
  8. TUMERIC EXTRACT [Concomitant]
  9. LUTEIN + ZEATHIN [Concomitant]
  10. GO LESS [Concomitant]
  11. CHLORTHALIDONE. [Concomitant]
     Active Substance: CHLORTHALIDONE
  12. VITAMIN E [Concomitant]
     Active Substance: .ALPHA.-TOCOPHEROL
  13. LECITHIN [Concomitant]
     Active Substance: LECITHIN
  14. BONE BUILDER [Concomitant]
  15. BETA CAROTEINE [Concomitant]
  16. PRESERVISION [Concomitant]
     Active Substance: MINERALS\VITAMINS
  17. L-GLUTATHIONE [Concomitant]
     Active Substance: GLUTATHIONE
  18. HYALURONIC ACID [Concomitant]
     Active Substance: HYALURONIC ACID
  19. TRIPHALA [Concomitant]
  20. ADRENAL STRESS [Concomitant]
  21. ALPHA LIPOIC ACID [Concomitant]
     Active Substance: .ALPHA.-LIPOIC ACID
  22. L-PLANTARUM [Concomitant]
  23. CIPRO [Suspect]
     Active Substance: CIPROFLOXACIN HYDROCHLORIDE
     Indication: DIVERTICULITIS
     Route: 048
     Dates: start: 20141129, end: 20141205
  24. CELEBREX [Concomitant]
     Active Substance: CELECOXIB
  25. JARROW^S BONE-UP [Concomitant]
  26. GLUTATHIONE PRECURSOR COMPLEX [Concomitant]
  27. ENHANCED PQQ AND UBIQUINOL [Concomitant]
  28. VITAMIN C [Concomitant]
     Active Substance: ASCORBIC ACID
  29. IPRIFLAVONE [Concomitant]
     Active Substance: IPRIFLAVONE
  30. B-50 [Concomitant]
  31. ELDERBERRY [Concomitant]
     Active Substance: HERBALS
  32. MILK THISTLE, DANDELION, YELLOW DOCK [Concomitant]
  33. BLACK CURRANT SEED OIL [Concomitant]
  34. NAC [Concomitant]
  35. XANAX [Concomitant]
     Active Substance: ALPRAZOLAM
  36. VITAMIN D3 [Concomitant]
     Active Substance: CHOLECALCIFEROL
  37. MAGNESIUM [Concomitant]
     Active Substance: MAGNESIUM
  38. B-50 COMPLEX [Concomitant]
  39. XYZAL [Concomitant]
     Active Substance: LEVOCETIRIZINE DIHYDROCHLORIDE
  40. ASTELIN [Concomitant]
     Active Substance: AZELASTINE HYDROCHLORIDE
  41. ESTRACE [Concomitant]
     Active Substance: ESTRADIOL
  42. VICODIN [Concomitant]
     Active Substance: ACETAMINOPHEN\HYDROCODONE BITARTRATE
  43. POTASSIUM CITRATE. [Concomitant]
     Active Substance: POTASSIUM CITRATE
  44. QUERCETIN + BROMELAIN [Concomitant]
  45. L-GLUTAMINE [Concomitant]

REACTIONS (7)
  - Nausea [None]
  - Weight decreased [None]
  - Deafness unilateral [None]
  - Deafness transitory [None]
  - Ageusia [None]
  - Decreased appetite [None]
  - Confusional state [None]

NARRATIVE: CASE EVENT DATE: 20141129
